FAERS Safety Report 8550277-6 (Version None)
Quarter: 2012Q3

REPORT INFORMATION
  Report Type: 
  Country: None (occurrence: None)
  Receive Date: 20120730
  Receipt Date: 20120725
  Transmission Date: 20120928
  Serious: Yes (Hospitalization, Other)
  Sender: FDA-Public Use
  Company Number: PHHY2012BR065144

PATIENT
  Sex: Male

DRUGS (5)
  1. SOMALGIN [Suspect]
     Indication: CARDIAC DISORDER
     Dosage: UNK UKN, UNK
  2. LOSARTAN POTASSIUM [Suspect]
     Indication: HYPERTENSION
     Dosage: UNK UKN, UNK
  3. DIOVAN HCT [Suspect]
     Indication: CARDIAC DISORDER
     Dosage: 1 TABLET (160/12.5 MG) DAILY
     Route: 048
  4. DILTIAZEM [Suspect]
     Indication: CARDIAC DISORDER
     Dosage: UNK UKN, UNK
  5. VYTORIN [Suspect]
     Indication: CARDIAC DISORDER
     Dosage: UNK UKN, UNK

REACTIONS (2)
  - CEREBROVASCULAR ACCIDENT [None]
  - ACUTE MYOCARDIAL INFARCTION [None]
